FAERS Safety Report 7487038-5 (Version None)
Quarter: 2011Q2

REPORT INFORMATION
  Report Type: 
  Country: None (occurrence: None)
  Receive Date: 20110518
  Receipt Date: 20110512
  Transmission Date: 20111010
  Serious: Yes (Other)
  Sender: FDA-Public Use
  Company Number: US-BIOGENIDEC-2010BI033697

PATIENT
  Age: 28 Year
  Sex: Female

DRUGS (6)
  1. TYSABRI [Suspect]
     Indication: MULTIPLE SCLEROSIS
     Route: 042
     Dates: start: 20061114, end: 20100706
  2. ZOLOFT [Concomitant]
     Dates: start: 20101101
  3. FISH OIL [Concomitant]
  4. PRENATAL VITAMINS [Concomitant]
  5. VITAMIN D [Concomitant]
  6. TYSABRI [Suspect]
     Route: 042
     Dates: start: 20110426

REACTIONS (2)
  - GESTATIONAL DIABETES [None]
  - PREGNANCY [None]
